FAERS Safety Report 26093041 (Version 1)
Quarter: 2025Q4

REPORT INFORMATION
  Report Type: Spontaneous
  Country: US (occurrence: US)
  Receive Date: 20251126
  Receipt Date: 20251126
  Transmission Date: 20260118
  Serious: No
  Sender: SANOFI AVENTIS
  Company Number: US-SA-2025SA351591

PATIENT
  Sex: Female
  Weight: 78.41 kg

DRUGS (6)
  1. KEVZARA [Suspect]
     Active Substance: SARILUMAB
     Indication: Polymyalgia rheumatica
     Dosage: 200 MG, QOW
     Route: 058
  2. CYCLOBENZAPRINE HYDROCHLORIDE [Concomitant]
     Active Substance: CYCLOBENZAPRINE HYDROCHLORIDE
  3. METHOTREXATE SODIUM [Concomitant]
     Active Substance: METHOTREXATE SODIUM
  4. ARMOUR THYROID [Concomitant]
     Active Substance: THYROID, PORCINE
  5. CELEBREX [Concomitant]
     Active Substance: CELECOXIB
  6. MAGNESIUM [Concomitant]
     Active Substance: MAGNESIUM

REACTIONS (4)
  - Radiculopathy [Unknown]
  - Back pain [Unknown]
  - Feeling abnormal [Unknown]
  - Fatigue [Unknown]
